FAERS Safety Report 8509516-X (Version None)
Quarter: 2012Q3

REPORT INFORMATION
  Report Type: 
  Country: None (occurrence: None)
  Receive Date: 20120713
  Receipt Date: 20120709
  Transmission Date: 20120928
  Serious: Yes (Death)
  Sender: FDA-Public Use
  Company Number: US-PFIZER INC-2012164340

PATIENT
  Sex: Female

DRUGS (14)
  1. BICARBONATE [Concomitant]
     Dosage: UNK
  2. FRAGMIN [Concomitant]
     Dosage: UNK, 2X/DAY
     Route: 058
  3. MINOCYCLINE [Concomitant]
     Dosage: 100 MG, 2X/DAY
     Dates: start: 20120707
  4. KAYEXALATE [Concomitant]
     Dosage: 60 G AT A GAP OF 4 HOURS, 2X/DAY
  5. PROTONIX [Concomitant]
     Dosage: UNK, 2X/DAY
     Route: 048
  6. LEVOPHED [Concomitant]
     Dosage: UNK
  7. COUMADIN [Concomitant]
     Dosage: 5 MG, DAILY
  8. ZYVOX [Suspect]
     Indication: STAPHYLOCOCCAL INFECTION
     Dosage: UNK
     Dates: end: 20120707
  9. RIFAMPIN [Concomitant]
     Dosage: 600 MG, 2X/DAY
     Dates: start: 20120627, end: 20120705
  10. DEXTROSE 50% [Concomitant]
     Dosage: UNK, 2X/DAY
     Route: 042
  11. DAPTOMYCIN [Concomitant]
     Dosage: 500 MG, DAILY
     Route: 042
     Dates: start: 20120622, end: 20120705
  12. CEFTAROLINE [Concomitant]
     Dosage: 600 MG, 2X/DAY
     Route: 042
     Dates: start: 20120627, end: 20120705
  13. MORPHINE [Concomitant]
     Dosage: UNK
  14. KAYEXALATE [Concomitant]
     Dosage: 60 G, DAILY

REACTIONS (4)
  - PROTHROMBIN TIME RATIO ABNORMAL [None]
  - BLOOD ALKALINE PHOSPHATASE ABNORMAL [None]
  - ASPARTATE AMINOTRANSFERASE ABNORMAL [None]
  - DEATH [None]
